FAERS Safety Report 7024460-5 (Version None)
Quarter: 2010Q3

REPORT INFORMATION
  Report Type: 
  Country: None (occurrence: None)
  Receive Date: 20100917
  Receipt Date: 20090623
  Transmission Date: 20110219
  Serious: No
  Sender: FDA-Public Use
  Company Number: 2009-00183

PATIENT
  Sex: Male

DRUGS (1)
  1. ZICAM COLD REMEDY GEL SWABS [Suspect]

REACTIONS (1)
  - ANOSMIA [None]
